FAERS Safety Report 18405757 (Version 2)
Quarter: 2021Q4

REPORT INFORMATION
  Report Type: Spontaneous
  Country: US (occurrence: US)
  Receive Date: 20201020
  Receipt Date: 20211201
  Transmission Date: 20220303
  Serious: No
  Sender: FDA-Public Use
  Company Number: US-ELI_LILLY_AND_COMPANY-US202009011558

PATIENT
  Age: 69 Year
  Sex: Female

DRUGS (5)
  1. TRULICITY [Suspect]
     Active Substance: DULAGLUTIDE
     Indication: Sleep disorder
     Dosage: 0.75 MG, UNKNOWN
     Route: 065
     Dates: start: 2019
  2. TRULICITY [Suspect]
     Active Substance: DULAGLUTIDE
     Indication: Eating disorder
  3. TRULICITY [Suspect]
     Active Substance: DULAGLUTIDE
     Indication: Sleep disorder
     Dosage: 1.5 MG, UNKNOWN
     Route: 065
     Dates: start: 202003
  4. TRULICITY [Suspect]
     Active Substance: DULAGLUTIDE
     Indication: Eating disorder
     Dosage: 1.5 MG, UNKNOWN
     Route: 065
     Dates: start: 202003
  5. HEPARIN [Suspect]
     Active Substance: HEPARIN SODIUM
     Indication: Product used for unknown indication
     Dosage: UNK UNK, UNKNOWN
     Route: 065

REACTIONS (7)
  - Sleep disorder [Unknown]
  - Eating disorder [Unknown]
  - Rubber sensitivity [Unknown]
  - Memory impairment [Unknown]
  - Injection site erythema [Recovering/Resolving]
  - Injection site reaction [Recovering/Resolving]
  - Injection site pruritus [Recovering/Resolving]

NARRATIVE: CASE EVENT DATE: 20200801
